FAERS Safety Report 17660917 (Version 1)
Quarter: 2020Q2

REPORT INFORMATION
  Report Type: Spontaneous
  Country: US (occurrence: US)
  Receive Date: 20200413
  Receipt Date: 20200413
  Transmission Date: 20200713
  Serious: Yes (Other)
  Sender: FDA-Public Use
  Company Number: US-STRIDES ARCOLAB LIMITED-2020SP004658

PATIENT
  Age: 72 Year
  Sex: Male

DRUGS (5)
  1. ISOPROTERENOL [ISOPRENALINE] [Suspect]
     Active Substance: ISOPROTERENOL
     Indication: VENTRICULAR TACHYCARDIA
     Dosage: UNK, INFUSION
     Route: 042
  2. LIDOCAINE. [Suspect]
     Active Substance: LIDOCAINE
     Indication: VENTRICULAR TACHYCARDIA
     Dosage: UNK, INFUSION
     Route: 042
  3. ISOPROTERENOL [ISOPRENALINE] [Suspect]
     Active Substance: ISOPROTERENOL
     Indication: BRADYCARDIA
  4. VEMURAFENIB. [Concomitant]
     Active Substance: VEMURAFENIB
     Indication: ERDHEIM-CHESTER DISEASE
     Dosage: UNK
     Route: 065
  5. LIDOCAINE. [Suspect]
     Active Substance: LIDOCAINE
     Indication: BRADYCARDIA

REACTIONS (2)
  - Off label use [Unknown]
  - Atrial tachycardia [Unknown]
